FAERS Safety Report 21156580 (Version 1)
Quarter: 2022Q3

REPORT INFORMATION
  Report Type: Report from Study
  Country: BR (occurrence: None)
  Receive Date: 20220801
  Receipt Date: 20220801
  Transmission Date: 20221027
  Serious: Yes (Hospitalization)
  Sender: FDA-Public Use
  Company Number: BR-Merck Healthcare KGaA-9339840

PATIENT
  Age: 35 Year
  Sex: Female

DRUGS (5)
  1. REBIF [Suspect]
     Active Substance: INTERFERON BETA-1A
     Indication: Multiple sclerosis
     Dates: start: 20170128, end: 20190902
  2. ATENOLOL [Concomitant]
     Active Substance: ATENOLOL
     Indication: Hypertension
     Dosage: BEGINNING 12 YEARS AGO
  3. AMLODIPINE\RAMIPRIL [Concomitant]
     Active Substance: AMLODIPINE\RAMIPRIL
     Indication: Hypertension
     Dosage: AMLODIPINE 5MG + RAMIPRIL 5MG, PERSONALIZED PRODUCT, BEGINNING 12 YEARS AGO,
  4. INDAPAMIDE [Concomitant]
     Active Substance: INDAPAMIDE
     Indication: Hypertension
     Dosage: INDAPAMIDE 1,5MG. STARTED 12 YEARS AGO
  5. ERGOCALCIFEROL [Concomitant]
     Active Substance: ERGOCALCIFEROL
     Indication: Product used for unknown indication

REACTIONS (1)
  - Neoplasm malignant [Not Recovered/Not Resolved]

NARRATIVE: CASE EVENT DATE: 20170606
